FAERS Safety Report 7526202-3 (Version None)
Quarter: 2011Q2

REPORT INFORMATION
  Report Type: 
  Country: None (occurrence: None)
  Receive Date: 20110606
  Receipt Date: 20101118
  Transmission Date: 20111010
  Serious: No
  Sender: FDA-Public Use
  Company Number: US-BRISTOL-MYERS SQUIBB COMPANY-15393531

PATIENT
  Age: 45 Year
  Sex: Male

DRUGS (3)
  1. TRICOR [Concomitant]
  2. SUSTIVA [Suspect]
     Dates: start: 20091201
  3. TRUVADA [Suspect]

REACTIONS (2)
  - DRUG SCREEN POSITIVE [None]
  - BLOOD CHOLESTEROL INCREASED [None]
